FAERS Safety Report 4945618-2 (Version None)
Quarter: 2006Q1

REPORT INFORMATION
  Report Type: 
  Country: None (occurrence: None)
  Receive Date: 20060117
  Receipt Date: 20051115
  Transmission Date: 20060701
  Serious: Yes (Hospitalization, Disabling)
  Sender: FDA-Public Use
  Company Number: A03200503771

PATIENT

DRUGS (1)
  1. PLAVIX [Suspect]
     Indication: CARDIOVASCULAR DISORDER
     Dosage: ORAL
     Route: 048
     Dates: start: 20040720, end: 20040817

REACTIONS (3)
  - EMOTIONAL DISTRESS [None]
  - PAIN [None]
  - THROMBOTIC THROMBOCYTOPENIC PURPURA [None]
